FAERS Safety Report 14189934 (Version 8)
Quarter: 2022Q1

REPORT INFORMATION
  Report Type: Spontaneous
  Country: US (occurrence: US)
  Receive Date: 20171115
  Receipt Date: 20220119
  Transmission Date: 20220423
  Serious: Yes (Hospitalization, Other)
  Sender: FDA-Public Use
  Company Number: US-PFIZER INC-2017488434

PATIENT
  Age: 58 Year
  Sex: Female
  Weight: 49.887 kg

DRUGS (6)
  1. XELJANZ XR [Suspect]
     Active Substance: TOFACITINIB CITRATE
     Indication: Rheumatoid arthritis
     Dosage: 11 MG, 1X/DAY
     Route: 048
  2. XELJANZ XR [Suspect]
     Active Substance: TOFACITINIB CITRATE
     Dosage: 11 MG, 1X/DAY
     Route: 048
     Dates: start: 2016
  3. XELJANZ XR [Suspect]
     Active Substance: TOFACITINIB CITRATE
     Dosage: 11 MG, 1X/DAY
     Route: 048
     Dates: start: 2018, end: 2020
  4. XELJANZ XR [Suspect]
     Active Substance: TOFACITINIB CITRATE
     Dosage: 11 MG, 1X/DAY
     Route: 048
     Dates: start: 202005
  5. XELJANZ XR [Suspect]
     Active Substance: TOFACITINIB CITRATE
     Dosage: 11 MG, 1X/DAY
     Route: 048
     Dates: start: 2018
  6. AZATHIOPRINE [Concomitant]
     Active Substance: AZATHIOPRINE
     Indication: Rheumatoid arthritis
     Dosage: 50 MG, 1X/DAY
     Dates: start: 2016

REACTIONS (16)
  - Breast cyst [Recovered/Resolved]
  - Coronavirus infection [Unknown]
  - Breast fibroma [Unknown]
  - Muscle spasms [Not Recovered/Not Resolved]
  - Alopecia [Recovered/Resolved]
  - Wrist deformity [Unknown]
  - Foot deformity [Unknown]
  - Nasal congestion [Unknown]
  - Rhinorrhoea [Unknown]
  - Condition aggravated [Unknown]
  - Muscular weakness [Unknown]
  - Infection [Unknown]
  - Condition aggravated [Unknown]
  - Arthralgia [Unknown]
  - Off label use [Unknown]
  - Product use issue [Unknown]

NARRATIVE: CASE EVENT DATE: 20160101
